FAERS Safety Report 6853437-5 (Version None)
Quarter: 2010Q3

REPORT INFORMATION
  Report Type: 
  Country: None (occurrence: None)
  Receive Date: 20100717
  Receipt Date: 20071206
  Transmission Date: 20110219
  Serious: No
  Sender: FDA-Public Use
  Company Number: US-PFIZER INC-2007104498

PATIENT
  Sex: Male
  Weight: 84.8 kg

DRUGS (4)
  1. CHANTIX [Suspect]
     Indication: SMOKING CESSATION THERAPY
     Dates: start: 20071127
  2. LEVAQUIN [Concomitant]
  3. MUCINEX [Concomitant]
  4. AFRIN [Concomitant]

REACTIONS (4)
  - ASTHENIA [None]
  - BRONCHITIS [None]
  - HEART RATE IRREGULAR [None]
  - SINUSITIS [None]
